FAERS Safety Report 12485631 (Version 1)
Quarter: 2016Q2

REPORT INFORMATION
  Report Type: Spontaneous
  Country: DE (occurrence: DE)
  Receive Date: 20160621
  Receipt Date: 20160621
  Transmission Date: 20160815
  Serious: Yes (Hospitalization)
  Sender: FDA-Public Use
  Company Number: DE-BAYER-2016-115757

PATIENT
  Age: 32 Year
  Sex: Female
  Weight: 80 kg

DRUGS (1)
  1. AVALOX [Suspect]
     Active Substance: MOXIFLOXACIN HYDROCHLORIDE
     Indication: BREAST INFLAMMATION
     Dosage: 400 MG, QD
     Route: 048
     Dates: start: 20160531

REACTIONS (18)
  - Cerebrovascular accident [Recovered/Resolved]
  - Panic attack [Unknown]
  - Back pain [Recovered/Resolved]
  - Paraesthesia [Recovered/Resolved]
  - Hypoaesthesia [Recovered/Resolved]
  - Syncope [Recovered/Resolved]
  - Cardiovascular disorder [Recovered/Resolved]
  - Muscular weakness [Recovered/Resolved]
  - Asthenia [Recovered/Resolved]
  - Hyperhidrosis [Recovered/Resolved]
  - Malaise [Recovered/Resolved]
  - Dizziness [Recovered/Resolved]
  - Nausea [Recovered/Resolved]
  - Respiratory distress [Recovered/Resolved]
  - Restlessness [Recovered/Resolved]
  - Angina pectoris [Recovered/Resolved]
  - Anxiety [Recovered/Resolved]
  - Language disorder [Recovered/Resolved]

NARRATIVE: CASE EVENT DATE: 20160531
